FAERS Safety Report 11694722 (Version 1)
Quarter: 2015Q4

REPORT INFORMATION
  Report Type: Spontaneous
  Country: US (occurrence: US)
  Receive Date: 20151103
  Receipt Date: 20151103
  Transmission Date: 20160304
  Serious: No
  Sender: FDA-Public Use
  Company Number: US-BAUSCH-BL-2015-011357

PATIENT
  Age: 77 Year
  Sex: Female
  Weight: 47.67 kg

DRUGS (2)
  1. NEOMYCIN AND POLYMYXIN B SULFATES AND DEXAMETHASONE OPHTHALMIC SUSPENS [Suspect]
     Active Substance: DEXAMETHASONE\NEOMYCIN\POLYMYXIN B SULFATE
     Dosage: ONE DROP FOUR TIMES DAILY IN RIGHT EYE.
     Route: 031
     Dates: start: 20150402
  2. NEOMYCIN AND POLYMYXIN B SULFATES AND DEXAMETHASONE OPHTHALMIC SUSPENS [Suspect]
     Active Substance: DEXAMETHASONE\NEOMYCIN\POLYMYXIN B SULFATE
     Indication: CELLULITIS
     Dosage: ONE DROP FOUR TIMES DAILY IN LEFT EYE.
     Route: 031
     Dates: start: 20150323, end: 20150410

REACTIONS (2)
  - Abnormal sensation in eye [Not Recovered/Not Resolved]
  - Eyelid oedema [Not Recovered/Not Resolved]

NARRATIVE: CASE EVENT DATE: 2015
